FAERS Safety Report 9840925 (Version 1)
Quarter: 2014Q1

REPORT INFORMATION
  Report Type: Spontaneous
  Country: US (occurrence: None)
  Receive Date: 20140123
  Receipt Date: 20140123
  Transmission Date: 20141002
  Serious: Yes (Death, Life-Threatening)
  Sender: FDA-Public Use
  Company Number: None

PATIENT
  Age: 25 Year
  Sex: 0
  Weight: 73 kg

DRUGS (16)
  1. ECULIZUMAB [Suspect]
     Indication: COMPLEMENT FACTOR DECREASED
     Route: 042
     Dates: start: 20131231, end: 20140108
  2. ECULIZUMAB [Suspect]
     Indication: HAEMOLYTIC URAEMIC SYNDROME
     Route: 042
     Dates: start: 20131231, end: 20140108
  3. CALCIUM CITRATE-VITAMIN D [Concomitant]
  4. CALCIUM GLUCONATE [Concomitant]
  5. DOCUSATE SODIUM HYDROCORTISONE LABETALOL [Concomitant]
  6. MAGNESIUM SULFATE [Concomitant]
  7. MINOXIDIL [Concomitant]
  8. MYCOPHENOLATE [Concomitant]
  9. NYSTATIN [Concomitant]
  10. PANTOPRAZOLE [Concomitant]
  11. PREDNISONE [Concomitant]
  12. SODIUM CHLORIDE [Concomitant]
  13. ECULIZUMAB [Concomitant]
  14. PENICILLIN V POTASSIUM [Concomitant]
  15. HYDROCORTISONE [Concomitant]
  16. LABELATOL [Concomitant]

REACTIONS (19)
  - Vaginal discharge [None]
  - Skin disorder [None]
  - Vulvovaginal swelling [None]
  - Diarrhoea [None]
  - Chills [None]
  - Asthenia [None]
  - Feeling abnormal [None]
  - Nausea [None]
  - Dizziness postural [None]
  - Localised oedema [None]
  - Mental impairment [None]
  - Encephalopathy [None]
  - Rash vesicular [None]
  - Herpes zoster disseminated [None]
  - Encephalitis [None]
  - Ventricular tachycardia [None]
  - Ventricular fibrillation [None]
  - Brain injury [None]
  - Brain oedema [None]
